FAERS Safety Report 12121890 (Version 1)
Quarter: 2016Q1

REPORT INFORMATION
  Report Type: Spontaneous
  Country: US (occurrence: US)
  Receive Date: 20160226
  Receipt Date: 20160226
  Transmission Date: 20160526
  Serious: No
  Sender: FDA-Public Use
  Company Number: US-ALLERGAN-1518572US

PATIENT
  Sex: Female

DRUGS (3)
  1. LOTEPREDNOL ETABONATE [Concomitant]
     Active Substance: LOTEPREDNOL ETABONATE
  2. GENTAMYCIN SULFATE [Concomitant]
     Active Substance: GENTAMICIN SULFATE
  3. REFRESH OPTIVE [Suspect]
     Active Substance: CARBOXYMETHYLCELLULOSE SODIUM\GLYCERIN
     Indication: PRODUCT USED FOR UNKNOWN INDICATION
     Dosage: UNK
     Route: 047

REACTIONS (3)
  - Visual acuity reduced [Unknown]
  - Ocular discomfort [Unknown]
  - Eye infection [Unknown]
